FAERS Safety Report 23172083 (Version 2)
Quarter: 2024Q1

REPORT INFORMATION
  Report Type: Report from Study
  Country: US (occurrence: US)
  Receive Date: 20231110
  Receipt Date: 20240206
  Transmission Date: 20240410
  Serious: Yes (Hospitalization, Disabling, Other)
  Sender: FDA-Public Use
  Company Number: US-SA-SAC20230922000062

PATIENT
  Age: 65 Year
  Sex: Male

DRUGS (1)
  1. AVALGLUCOSIDASE ALFA-NGPT [Suspect]
     Active Substance: AVALGLUCOSIDASE ALFA-NGPT
     Indication: Glycogen storage disease type II
     Dosage: 1620 (UNITS NOT PROVIDED), QOW
     Route: 042
     Dates: start: 20211122

REACTIONS (12)
  - Hepatic cancer [Recovering/Resolving]
  - Pancreatic carcinoma [Recovering/Resolving]
  - Pancreatic duct obstruction [Unknown]
  - Liver disorder [Unknown]
  - Jaundice [Unknown]
  - Hepatic enzyme abnormal [Unknown]
  - Intestinal mass [Unknown]
  - Hepatic lesion [Unknown]
  - Mobility decreased [Recovering/Resolving]
  - Peripheral swelling [Recovering/Resolving]
  - Muscular weakness [Recovering/Resolving]
  - Erythema [Recovering/Resolving]

NARRATIVE: CASE EVENT DATE: 20230919
